FAERS Safety Report 4368277-9 (Version None)
Quarter: 2004Q2

REPORT INFORMATION
  Report Type: 
  Country: None (occurrence: None)
  Receive Date: 20040527
  Receipt Date: 20040512
  Transmission Date: 20050107
  Serious: Yes (Hospitalization)
  Sender: FDA-Public Use
  Company Number: F01200401128

PATIENT
  Age: 51 Year
  Sex: Male

DRUGS (4)
  1. OXALIPLATIN - SOLUTION [Suspect]
     Indication: COLORECTAL CANCER METASTATIC
     Dosage: INTRAVENOUS NOS
     Route: 042
  2. FLUOROURACIL [Suspect]
     Dosage: INTRAVENOUS NOS
     Route: 042
  3. LEUCOVORIN CALCIUM [Suspect]
     Dosage: INTRAVENOUS NOS
     Route: 042
  4. PTK787/ZK 222584 OR PLACEBO - TABLET - 1250 MG [Suspect]
     Dosage: ORAL
     Route: 048
     Dates: start: 20040216, end: 20040428

REACTIONS (3)
  - CELLULITIS [None]
  - SECONDARY IMMUNODEFICIENCY [None]
  - WOUND ABSCESS [None]
